FAERS Safety Report 8312041-2 (Version None)
Quarter: 2012Q2

REPORT INFORMATION
  Report Type: 
  Country: None (occurrence: None)
  Receive Date: 20120425
  Receipt Date: 20120412
  Transmission Date: 20120825
  Serious: Yes (Other)
  Sender: FDA-Public Use
  Company Number: US-ELI_LILLY_AND_COMPANY-US201204006451

PATIENT
  Age: 52 Year
  Sex: Female

DRUGS (2)
  1. CYMBALTA [Suspect]
     Indication: FIBROMYALGIA
     Dosage: 30 MG, UNKNOWN
  2. CYMBALTA [Suspect]
     Dosage: 30 MG, UNKNOWN

REACTIONS (2)
  - HYPERTENSIVE CRISIS [None]
  - SINUS OPERATION [None]
